FAERS Safety Report 21547102 (Version 1)
Quarter: 2022Q4

REPORT INFORMATION
  Report Type: Spontaneous
  Country: US (occurrence: None)
  Receive Date: 20221103
  Receipt Date: 20221103
  Transmission Date: 20230113
  Serious: Yes (Other)
  Sender: FDA-Public Use
  Company Number: US-MLMSERVICE-20221020-3872132-1

PATIENT
  Age: 59 Year
  Sex: Female

DRUGS (2)
  1. HEPARIN [Suspect]
     Active Substance: HEPARIN SODIUM
     Indication: Anticoagulant therapy
     Dosage: CONTINIOUS
     Route: 042
  2. ASPIRIN [Concomitant]
     Active Substance: ASPIRIN
     Indication: Antiplatelet therapy
     Route: 065

REACTIONS (2)
  - Muscle haemorrhage [Unknown]
  - Spontaneous haemorrhage [Unknown]
